FAERS Safety Report 22293625 (Version 2)
Quarter: 2023Q4

REPORT INFORMATION
  Report Type: Spontaneous
  Country: US (occurrence: US)
  Receive Date: 20230508
  Receipt Date: 20231120
  Transmission Date: 20240109
  Serious: Yes (Life-Threatening, Hospitalization, Other)
  Sender: FDA-Public Use
  Company Number: None

PATIENT
  Age: 4 Decade
  Sex: Male

DRUGS (10)
  1. CISPLATIN [Suspect]
     Active Substance: CISPLATIN
     Indication: Testis cancer
     Dosage: UNK, CYCLICAL
     Route: 065
  2. ETOPOSIDE [Suspect]
     Active Substance: ETOPOSIDE
     Indication: Testis cancer
     Dosage: UNK, CYCLICAL
     Route: 065
  3. VANCOMYCIN [Suspect]
     Active Substance: VANCOMYCIN
     Indication: Gastroenteritis astroviral
     Dosage: UNK
     Route: 065
  4. VANCOMYCIN [Suspect]
     Active Substance: VANCOMYCIN
     Indication: Neutropenic sepsis
  5. VANCOMYCIN [Suspect]
     Active Substance: VANCOMYCIN
     Indication: Escherichia infection
  6. VANCOMYCIN [Suspect]
     Active Substance: VANCOMYCIN
     Indication: Campylobacter infection
  7. MEROPENEM [Suspect]
     Active Substance: MEROPENEM
     Indication: Campylobacter infection
     Dosage: UNK
     Route: 065
  8. MEROPENEM [Suspect]
     Active Substance: MEROPENEM
     Indication: Gastroenteritis astroviral
  9. MEROPENEM [Suspect]
     Active Substance: MEROPENEM
     Indication: Escherichia infection
  10. MEROPENEM [Suspect]
     Active Substance: MEROPENEM
     Indication: Neutropenic sepsis

REACTIONS (6)
  - Linear IgA disease [Recovered/Resolved]
  - Gastroenteritis astroviral [Unknown]
  - Neutropenic sepsis [Unknown]
  - Campylobacter infection [Unknown]
  - Escherichia infection [Unknown]
  - Off label use [Unknown]
